FAERS Safety Report 8272011-X (Version None)
Quarter: 2012Q2

REPORT INFORMATION
  Report Type: 
  Country: None (occurrence: None)
  Receive Date: 20120410
  Receipt Date: 20120402
  Transmission Date: 20120825
  Serious: No
  Sender: FDA-Public Use
  Company Number: US-JNJFOC-20120400789

PATIENT
  Sex: Female

DRUGS (2)
  1. VICODIN [Concomitant]
     Indication: HERPES ZOSTER
     Route: 065
  2. DURAGESIC-100 [Suspect]
     Indication: HERPES ZOSTER
     Route: 062

REACTIONS (2)
  - WRONG TECHNIQUE IN DRUG USAGE PROCESS [None]
  - DRUG ADMINISTRATION ERROR [None]
